FAERS Safety Report 4851791-7 (Version None)
Quarter: 2005Q4

REPORT INFORMATION
  Report Type: 
  Country: None (occurrence: None)
  Receive Date: 20051209
  Receipt Date: 20051128
  Transmission Date: 20060501
  Serious: Yes (Other)
  Sender: FDA-Public Use
  Company Number: 2005154148

PATIENT
  Age: 24 Year
  Sex: Female

DRUGS (2)
  1. ATARAX [Suspect]
     Indication: ANXIETY
     Dosage: 3 OR 4 IN ONE DAY (25 MG), ORAL
     Route: 048
  2. TERCIAN (CYAMEMAZINE) [Suspect]
     Indication: PSYCHOTIC DISORDER
     Dosage: ORAL
     Route: 048

REACTIONS (2)
  - ELECTROCARDIOGRAM QT PROLONGED [None]
  - LONG QT SYNDROME CONGENITAL [None]
